FAERS Safety Report 4314862-X (Version None)
Quarter: 2004Q1

REPORT INFORMATION
  Report Type: 
  Country: None (occurrence: None)
  Receive Date: 20040308
  Receipt Date: 20040220
  Transmission Date: 20041129
  Serious: Yes (Hospitalization)
  Sender: FDA-Public Use
  Company Number: 2004-00102FE

PATIENT
  Age: 33 Year
  Sex: Male

DRUGS (1)
  1. PENTASA [Suspect]
     Indication: CROHN'S DISEASE
     Dosage: 1500 MG ORALLY
     Route: 048
     Dates: start: 20040107, end: 20040127

REACTIONS (6)
  - BLOOD CREATININE INCREASED [None]
  - BLOOD UREA INCREASED [None]
  - HEPATIC FUNCTION ABNORMAL [None]
  - PROTEINURIA [None]
  - PYREXIA [None]
  - RENAL IMPAIRMENT [None]
